FAERS Safety Report 24003606 (Version 1)
Quarter: 2024Q2

REPORT INFORMATION
  Report Type: Spontaneous
  Country: US (occurrence: US)
  Receive Date: 20240624
  Receipt Date: 20240624
  Transmission Date: 20240715
  Serious: No
  Sender: FDA-Public Use
  Company Number: US-ROCHE-10000004334

PATIENT
  Sex: Female
  Weight: 66.22 kg

DRUGS (1)
  1. OCREVUS [Suspect]
     Active Substance: OCRELIZUMAB
     Indication: Relapsing-remitting multiple sclerosis
     Dosage: INITIAL SPLIT DOSE.
     Route: 042
     Dates: start: 20240531

REACTIONS (1)
  - Lyme disease [Not Recovered/Not Resolved]
